FAERS Safety Report 15518782 (Version 1)
Quarter: 2018Q4

REPORT INFORMATION
  Report Type: Spontaneous
  Country: FR (occurrence: FR)
  Receive Date: 20181017
  Receipt Date: 20181017
  Transmission Date: 20190205
  Serious: Yes (Other)
  Sender: FDA-Public Use
  Company Number: FR-MYLANLABS-2018M1077492

PATIENT
  Age: 36 Year
  Sex: Female
  Weight: 62 kg

DRUGS (1)
  1. ATOVAQUONE,PROGUANIL MYLAN [Suspect]
     Active Substance: ATOVAQUONE\PROGUANIL
     Indication: MALARIA PROPHYLAXIS
     Dosage: 1 DF, QD
     Route: 048
     Dates: start: 20180430, end: 20180501

REACTIONS (5)
  - Myalgia [Recovered/Resolved]
  - Disorientation [Recovered/Resolved]
  - Hallucination, visual [Recovered/Resolved]
  - Confusional state [Recovered/Resolved]
  - Loss of consciousness [Recovered/Resolved]

NARRATIVE: CASE EVENT DATE: 20180501
